FAERS Safety Report 9034104 (Version 1)
Quarter: 2013Q1

REPORT INFORMATION
  Report Type: Spontaneous
  Country: US (occurrence: US)
  Receive Date: 20130128
  Receipt Date: 20130128
  Transmission Date: 20140127
  Serious: Yes (Other)
  Sender: FDA-Public Use
  Company Number: US-AMGEN-USASP2012060068

PATIENT
  Age: 46 Year
  Sex: Female
  Weight: 76.36 kg

DRUGS (8)
  1. ENBREL [Suspect]
     Indication: PRODUCT USED FOR UNKNOWN INDICATION
     Dosage: 50 MG, QWK
     Route: 058
  2. LISINOPRIL [Concomitant]
     Dosage: 20 MG, UNK
  3. LOVASTATIN [Concomitant]
     Dosage: 20 MG, UNK
  4. POTASSIUM [Concomitant]
     Dosage: 75 MG, UNK
  5. METHOTREXATE [Concomitant]
     Dosage: 2.5 MG, UNK
  6. FOLIC ACID [Concomitant]
     Dosage: 1 MG, UNK
  7. EFFEXOR [Concomitant]
     Dosage: 150 MG, UNK
  8. ASPIRIN [Concomitant]
     Dosage: 81 MG, UNK

REACTIONS (1)
  - Injection site urticaria [Recovered/Resolved]
